FAERS Safety Report 25072635 (Version 1)
Quarter: 2025Q1

REPORT INFORMATION
  Report Type: Spontaneous
  Country: US (occurrence: US)
  Receive Date: 20250313
  Receipt Date: 20250313
  Transmission Date: 20250409
  Serious: Yes (Hospitalization, Other)
  Sender: NOVO NORDISK
  Company Number: US-NOVOPROD-1290439

PATIENT
  Age: 49 Year
  Sex: Female
  Weight: 97.959 kg

DRUGS (17)
  1. WEGOVY [Suspect]
     Active Substance: SEMAGLUTIDE
     Indication: Obesity
     Dosage: 0.25 MG, QW
     Dates: start: 20220123, end: 20220220
  2. WEGOVY [Suspect]
     Active Substance: SEMAGLUTIDE
     Indication: Obesity
     Dosage: 0.50 MG, QW
     Dates: start: 20220227, end: 20220327
  3. WEGOVY [Suspect]
     Active Substance: SEMAGLUTIDE
     Indication: Obesity
     Dosage: 1 MG, QW
     Dates: start: 20220403, end: 20220605
  4. WEGOVY [Suspect]
     Active Substance: SEMAGLUTIDE
     Indication: Obesity
     Dosage: 2.4 MG, QW
     Dates: start: 20220612, end: 20230523
  5. HYDROXYCHLOROQUINE DIPHOSPHATE [Concomitant]
     Active Substance: HYDROXYCHLOROQUINE DIPHOSPHATE
     Indication: Ill-defined disorder
     Dates: start: 20140812, end: 20241010
  6. IMURAN [Concomitant]
     Active Substance: AZATHIOPRINE
     Indication: Ill-defined disorder
     Dates: start: 20190218
  7. PREDNISONE [Concomitant]
     Active Substance: PREDNISONE
     Indication: Ill-defined disorder
     Dates: start: 20140812
  8. MELOXICAM [Concomitant]
     Active Substance: MELOXICAM
     Indication: Ill-defined disorder
     Dates: start: 20200901
  9. PREGABALIN [Concomitant]
     Active Substance: PREGABALIN
     Indication: Ill-defined disorder
     Dates: start: 20180801, end: 20240403
  10. CEFIXIME [Concomitant]
     Active Substance: CEFIXIME
     Indication: Ill-defined disorder
     Dates: start: 20140812
  11. ESTRADIOL [Concomitant]
     Active Substance: ESTRADIOL
     Indication: Menopause
     Dates: start: 20140812
  12. PROGESTERONE [Concomitant]
     Active Substance: PROGESTERONE
     Indication: Menopause
     Dates: start: 20140812
  13. LINZESS [Concomitant]
     Active Substance: LINACLOTIDE
     Indication: Constipation
     Dates: start: 20210508, end: 20230601
  14. ASPIRIN [Concomitant]
     Active Substance: ASPIRIN
     Indication: Ischaemia
     Dates: start: 20000101
  15. PHENTERMINE [Concomitant]
     Active Substance: PHENTERMINE
     Indication: Obesity
  16. CONTRAVE [Concomitant]
     Active Substance: BUPROPION HYDROCHLORIDE\NALTREXONE HYDROCHLORIDE
     Indication: Obesity
  17. QSYMIA [Concomitant]
     Active Substance: PHENTERMINE HYDROCHLORIDE\TOPIRAMATE
     Indication: Obesity

REACTIONS (10)
  - Loss of consciousness [Unknown]
  - Impaired gastric emptying [Not Recovered/Not Resolved]
  - Dehydration [Not Recovered/Not Resolved]
  - Malnutrition [Unknown]
  - Feeding disorder [Unknown]
  - Blood pressure fluctuation [Unknown]
  - Pallor [Unknown]
  - Weight decreased [Unknown]
  - Abdominal pain [Not Recovered/Not Resolved]
  - Off label use [Unknown]

NARRATIVE: CASE EVENT DATE: 20220301
